FAERS Safety Report 17817088 (Version 1)
Quarter: 2020Q2

REPORT INFORMATION
  Report Type: Spontaneous
  Country: DE (occurrence: DE)
  Receive Date: 20200522
  Receipt Date: 20200522
  Transmission Date: 20200714
  Serious: Yes (Hospitalization, Other)
  Sender: FDA-Public Use
  Company Number: DE-MYLANLABS-2020M1050446

PATIENT
  Age: 14 Year
  Sex: Female

DRUGS (1)
  1. ETHINYLESTRADIOL/LEVONORGESTREL [Suspect]
     Active Substance: ETHINYL ESTRADIOL\LEVONORGESTREL
     Indication: ORAL CONTRACEPTION
     Dosage: LEVONORGESTREL 150?G /ETHINYLESTRADIOL 30?G
     Route: 048

REACTIONS (2)
  - Constipation [Unknown]
  - Cerebral venous sinus thrombosis [Recovered/Resolved]
